FAERS Safety Report 4728461-9 (Version None)
Quarter: 2005Q3

REPORT INFORMATION
  Report Type: 
  Country: None (occurrence: None)
  Receive Date: 20050729
  Receipt Date: 20050722
  Transmission Date: 20060218
  Serious: Yes (Other)
  Sender: FDA-Public Use
  Company Number: PHBS2005DE10779

PATIENT
  Age: 8 Year
  Sex: Male
  Weight: 24 kg

DRUGS (2)
  1. DESMOPRESSIN [Suspect]
     Indication: ENURESIS
     Dosage: 20 UG/D
     Route: 065
  2. METHYLPHENIDATE HCL [Suspect]
     Route: 065

REACTIONS (3)
  - CONVULSION [None]
  - HYPONATRAEMIA [None]
  - VOMITING [None]
